FAERS Safety Report 7820328-2 (Version None)
Quarter: 2011Q4

REPORT INFORMATION
  Report Type: 
  Country: None (occurrence: None)
  Receive Date: 20111018
  Receipt Date: 20111003
  Transmission Date: 20120403
  Serious: Yes (Hospitalization)
  Sender: FDA-Public Use
  Company Number: US-ROCHE-1002584

PATIENT
  Sex: Female

DRUGS (3)
  1. PACLITAXEL [Suspect]
     Indication: BLADDER CANCER
     Dosage: OVER 1 HOUR ON DAYS 1,8,15,22,29,36,43
     Route: 042
  2. HERCEPTIN [Suspect]
     Indication: BLADDER CANCER
     Dosage: OVER 90 MIN ON DAY 1
     Route: 042
     Dates: start: 20100119
  3. HERCEPTIN [Suspect]
     Dosage: OVER 30 MIN ON DAY 8,15,22,29,36 AND 43

REACTIONS (2)
  - HYPOALBUMINAEMIA [None]
  - OEDEMA PERIPHERAL [None]
